FAERS Safety Report 12791860 (Version 1)
Quarter: 2016Q3

REPORT INFORMATION
  Report Type: Spontaneous
  Country: US (occurrence: US)
  Receive Date: 20160928
  Receipt Date: 20160928
  Transmission Date: 20161109
  Serious: No
  Sender: FDA-Public Use
  Company Number: None

PATIENT
  Age: 81 Year
  Sex: Female
  Weight: 52.2 kg

DRUGS (10)
  1. DEXILANT [Concomitant]
     Active Substance: DEXLANSOPRAZOLE
  2. CLARITHROMYCIN. [Concomitant]
     Active Substance: CLARITHROMYCIN
  3. POTASSIUM [Concomitant]
     Active Substance: POTASSIUM
  4. PRAVASTATIN. [Concomitant]
     Active Substance: PRAVASTATIN
  5. TOPAMAX [Concomitant]
     Active Substance: TOPIRAMATE
  6. VITAMIN D [Concomitant]
     Active Substance: CHOLECALCIFEROL
  7. FLUTICOSONE [Concomitant]
  8. CITRACAL [Concomitant]
     Active Substance: CALCIUM CITRATE
  9. HYOSCYAMINE 0.125MG SUBLINGUAL [Suspect]
     Active Substance: HYOSCYAMINE
     Indication: ABDOMINAL RIGIDITY
     Dosage: ?          QUANTITY:60 TABLET(S);?
     Route: 060
     Dates: start: 20160415, end: 20160907
  10. ASPIRIN. [Concomitant]
     Active Substance: ASPIRIN

REACTIONS (6)
  - Abdominal pain [None]
  - Dizziness [None]
  - Speech disorder [None]
  - Balance disorder [None]
  - Visual impairment [None]
  - Product quality issue [None]

NARRATIVE: CASE EVENT DATE: 20160415
